FAERS Safety Report 4836707-1 (Version None)
Quarter: 2005Q4

REPORT INFORMATION
  Report Type: 
  Country: None (occurrence: None)
  Receive Date: 20051123
  Receipt Date: 20050928
  Transmission Date: 20060501
  Serious: Yes (Hospitalization, Other)
  Sender: FDA-Public Use
  Company Number: GB-ABBOTT-05P-167-0312760-00

PATIENT
  Weight: 120 kg

DRUGS (4)
  1. REDUCTIL [Suspect]
     Indication: DRUG USE FOR UNKNOWN INDICATION
     Route: 048
     Dates: start: 20050101
  2. SERETIDE [Concomitant]
     Indication: ALVEOLITIS
     Route: 065
  3. SALBUTAMOL [Concomitant]
     Indication: ALVEOLITIS
     Route: 065
  4. TRAMADOL/PARACETAMOL [Concomitant]
     Indication: PAIN
     Route: 065

REACTIONS (2)
  - HENOCH-SCHONLEIN PURPURA [None]
  - VASCULITIS [None]
